FAERS Safety Report 17677998 (Version 2)
Quarter: 2020Q2

REPORT INFORMATION
  Report Type: Report from Study
  Country: None (occurrence: CA)
  Receive Date: 20200416
  Receipt Date: 20200623
  Transmission Date: 20200714
  Serious: Yes (Other)
  Sender: FDA-Public Use
  Company Number: CA-ABBVIE-20K-028-3340486-00

PATIENT
  Age: 48 Year
  Sex: Male

DRUGS (1)
  1. SKYRIZI [Suspect]
     Active Substance: RISANKIZUMAB-RZAA
     Indication: PSORIASIS
     Route: 058
     Dates: start: 20190827, end: 202001

REACTIONS (4)
  - Urticaria [Recovering/Resolving]
  - Angioedema [Unknown]
  - Pharyngeal swelling [Recovered/Resolved]
  - Chronic spontaneous urticaria [Recovering/Resolving]

NARRATIVE: CASE EVENT DATE: 201910
